FAERS Safety Report 13027248 (Version 1)
Quarter: 2016Q4

REPORT INFORMATION
  Report Type: Spontaneous
  Country: US (occurrence: US)
  Receive Date: 20161214
  Receipt Date: 20161214
  Transmission Date: 20170207
  Serious: No
  Sender: FDA-Public Use
  Company Number: US-ENDO PHARMACEUTICALS INC.-2016-005011

PATIENT
  Sex: Female

DRUGS (1)
  1. HYDROCODONE BITARTRATE / ACETAMINOPHEN [Suspect]
     Active Substance: ACETAMINOPHEN\HYDROCODONE BITARTRATE
     Indication: PAIN
     Route: 065

REACTIONS (3)
  - Suspected counterfeit product [Unknown]
  - Drug ineffective [Unknown]
  - Product quality issue [Unknown]
